FAERS Safety Report 10776007 (Version 1)
Quarter: 2015Q1

REPORT INFORMATION
  Report Type: Spontaneous
  Country: GB (occurrence: GB)
  Receive Date: 20150209
  Receipt Date: 20150209
  Transmission Date: 20150721
  Serious: Yes (Congenital Anomaly, Other)
  Sender: FDA-Public Use
  Company Number: GB-TEVA-537984ISR

PATIENT
  Sex: Male
  Weight: 2.38 kg

DRUGS (2)
  1. FOLIC ACID. [Concomitant]
     Active Substance: FOLIC ACID
     Route: 064
  2. CARBAMAZEPINE. [Suspect]
     Active Substance: CARBAMAZEPINE
     Dosage: 1200 MILLIGRAM DAILY;
     Route: 064

REACTIONS (8)
  - Obsessive-compulsive disorder [Unknown]
  - Congenital small intestinal atresia [Unknown]
  - Speech disorder developmental [Unknown]
  - Sensory disturbance [Unknown]
  - Affect lability [Unknown]
  - Developmental delay [Unknown]
  - Dysmorphism [Unknown]
  - Anxiety [Unknown]
